FAERS Safety Report 6500878-1 (Version None)
Quarter: 2009Q4

REPORT INFORMATION
  Report Type: 
  Country: None (occurrence: None)
  Receive Date: 20091216
  Receipt Date: 20090403
  Transmission Date: 20100525
  Serious: No
  Sender: FDA-Public Use
  Company Number: A0777031A

PATIENT
  Age: 55 Year
  Sex: Male

DRUGS (1)
  1. COMMIT [Suspect]
     Dates: start: 20090330, end: 20090330

REACTIONS (5)
  - CHEST PAIN [None]
  - DYSPEPSIA [None]
  - FEELING HOT [None]
  - GLOSSODYNIA [None]
  - INTENTIONAL DRUG MISUSE [None]
